FAERS Safety Report 10067575 (Version 2)
Quarter: 2014Q2

REPORT INFORMATION
  Report Type: Spontaneous
  Country: CH (occurrence: CH)
  Receive Date: 20140409
  Receipt Date: 20140409
  Transmission Date: 20141212
  Serious: Yes (Hospitalization)
  Sender: FDA-Public Use
  Company Number: CH-JNJFOC-20110711985

PATIENT
  Age: 42 Year
  Sex: Female

DRUGS (9)
  1. XARELTO [Suspect]
     Indication: UNEVALUABLE EVENT
     Route: 065
     Dates: start: 20110204, end: 20110306
  2. LYRICA [Concomitant]
     Route: 048
  3. MIACALCIC [Concomitant]
     Route: 045
  4. ELTROXIN [Concomitant]
     Route: 048
  5. REDOXON [Concomitant]
     Route: 048
  6. NAVOBAN [Concomitant]
     Route: 048
  7. IMPORTAL [Concomitant]
     Route: 048
  8. DALTEPARIN SODIUM [Concomitant]
     Route: 058
  9. NEXIUM [Concomitant]
     Route: 048

REACTIONS (4)
  - Cholestatic liver injury [Recovering/Resolving]
  - Nausea [Recovering/Resolving]
  - Abdominal discomfort [Recovering/Resolving]
  - Jaundice [Recovering/Resolving]
